FAERS Safety Report 15278630 (Version 2)
Quarter: 2018Q3

REPORT INFORMATION
  Report Type: Spontaneous
  Country: GB (occurrence: GB)
  Receive Date: 20180815
  Receipt Date: 20180827
  Transmission Date: 20181010
  Serious: Yes (Other)
  Sender: FDA-Public Use
  Company Number: GB-009507513-2007-155452-NL

PATIENT
  Age: 25 Year
  Sex: Female
  Weight: 66.8 kg

DRUGS (3)
  1. DYDROGESTERONE [Concomitant]
     Active Substance: DYDROGESTERONE
     Indication: METRORRHAGIA
     Dosage: 20 MG, QD
     Route: 048
     Dates: start: 20061218, end: 20061228
  2. TRIMETHOPRIM. [Concomitant]
     Active Substance: TRIMETHOPRIM
     Indication: URINARY TRACT INFECTION
     Dosage: 400 MG, QD
     Route: 048
     Dates: start: 20070110, end: 20070113
  3. IMPLANON [Suspect]
     Active Substance: ETONOGESTREL
     Indication: CONTRACEPTION
     Dosage: 68 MG, UNK
     Route: 058
     Dates: start: 20060629, end: 20070207

REACTIONS (5)
  - Nausea [Recovered/Resolved]
  - Unwanted pregnancy [Unknown]
  - Fatigue [Recovered/Resolved]
  - Abortion spontaneous [Unknown]
  - Dysmenorrhoea [Recovered/Resolved]
